FAERS Safety Report 8666656 (Version 2)
Quarter: 2013Q4

REPORT INFORMATION
  Report Type: Spontaneous
  Country: US (occurrence: US)
  Receive Date: 20120716
  Receipt Date: 20131101
  Transmission Date: 20140711
  Serious: No
  Sender: FDA-Public Use
  Company Number: US-009507513-1207USA003174

PATIENT
  Age: 20 Year
  Sex: Male

DRUGS (1)
  1. NOXAFIL [Suspect]
     Indication: FUNGAL SKIN INFECTION
     Dosage: 200 MG, TID
     Route: 048

REACTIONS (1)
  - Arthralgia [Recovered/Resolved]
